FAERS Safety Report 11765365 (Version 1)
Quarter: 2015Q4

REPORT INFORMATION
  Report Type: Spontaneous
  Country: US (occurrence: US)
  Receive Date: 20151120
  Receipt Date: 20151120
  Transmission Date: 20160304
  Serious: No
  Sender: FDA-Public Use
  Company Number: US-ELI_LILLY_AND_COMPANY-US201403003991

PATIENT
  Sex: Female

DRUGS (5)
  1. CALCIUM [Concomitant]
     Active Substance: CALCIUM
  2. ASPIRIN. [Concomitant]
     Active Substance: ASPIRIN
  3. LUMIGAN [Concomitant]
     Active Substance: BIMATOPROST
     Indication: OPHTHALMOLOGIC TREATMENT
  4. VITAMIN D                          /00107901/ [Concomitant]
     Active Substance: ERGOCALCIFEROL
  5. FORTEO [Suspect]
     Active Substance: TERIPARATIDE
     Indication: OSTEOPOROSIS
     Dosage: UNK
     Route: 065
     Dates: start: 201312

REACTIONS (2)
  - Injection site bruising [Unknown]
  - Weight increased [Unknown]
